FAERS Safety Report 14495617 (Version 1)
Quarter: 2018Q1

REPORT INFORMATION
  Report Type: Spontaneous
  Country: US (occurrence: US)
  Receive Date: 20180206
  Receipt Date: 20180206
  Transmission Date: 20180509
  Serious: Yes (Hospitalization, Other)
  Sender: FDA-Public Use
  Company Number: US-VISTAPHARM, INC.-VER201801-000289

PATIENT
  Age: 17 Year
  Sex: Male

DRUGS (2)
  1. HYDROCODONE AND ACETAMINOPHEN [Suspect]
     Active Substance: ACETAMINOPHEN\HYDROCODONE
     Indication: PRODUCT USED FOR UNKNOWN INDICATION
     Dosage: 150 TABLETS OF 500 MG ACETAMINOPHEN/25 MG DIPHENHYDRAMINE COMBINATION
     Route: 048
  2. DIPHENHYDRAMINE. [Suspect]
     Active Substance: DIPHENHYDRAMINE
     Indication: PRODUCT USED FOR UNKNOWN INDICATION
     Dosage: 150 TABLETS OF 500 MG ACETAMINOPHEN/25 MG DIPHENHYDRAMINE COMBINATION
     Route: 048

REACTIONS (4)
  - Hepatic encephalopathy [Recovering/Resolving]
  - Drug-induced liver injury [Recovering/Resolving]
  - Hyperammonaemia [Recovering/Resolving]
  - Toxicity to various agents [Recovering/Resolving]
